FAERS Safety Report 10359210 (Version 1)
Quarter: 2014Q3

REPORT INFORMATION
  Report Type: Spontaneous
  Country: US (occurrence: None)
  Receive Date: 20140731
  Receipt Date: 20140731
  Transmission Date: 20150326
  Serious: Yes (Other)
  Sender: FDA-Public Use
  Company Number: None

PATIENT
  Age: 2 Year
  Sex: Male

DRUGS (1)
  1. MONTELUKAST [Suspect]
     Active Substance: MONTELUKAST SODIUM
     Indication: ASTHMA PROPHYLAXIS
     Route: 048
     Dates: start: 20140404, end: 20140406

REACTIONS (1)
  - Eye swelling [None]

NARRATIVE: CASE EVENT DATE: 20140406
